FAERS Safety Report 5816926-8 (Version None)
Quarter: 2008Q3

REPORT INFORMATION
  Report Type: 
  Country: None (occurrence: None)
  Receive Date: 20080722
  Receipt Date: 20080716
  Transmission Date: 20090109
  Serious: No
  Sender: FDA-Public Use
  Company Number: US-BAYER-200828131NA

PATIENT
  Age: 81 Year
  Sex: Male

DRUGS (2)
  1. AVELOX [Suspect]
     Indication: DRUG USE FOR UNKNOWN INDICATION
     Dates: start: 20080620, end: 20080621
  2. SYMBICORT [Concomitant]

REACTIONS (1)
  - BLOOD GLUCOSE INCREASED [None]
